FAERS Safety Report 7729606-9 (Version None)
Quarter: 2011Q3

REPORT INFORMATION
  Report Type: 
  Country: None (occurrence: None)
  Receive Date: 20110906
  Receipt Date: 20110831
  Transmission Date: 20111222
  Serious: Yes (Life-Threatening, Hospitalization)
  Sender: FDA-Public Use
  Company Number: FR-SANOFI-AVENTIS-2011SA055863

PATIENT
  Age: 21 Year
  Sex: Female

DRUGS (6)
  1. TRIPHASIL-21 [Suspect]
     Route: 048
     Dates: end: 20110814
  2. DEPAKOTE [Suspect]
     Indication: BIPOLAR DISORDER
     Route: 048
     Dates: start: 20110810, end: 20110814
  3. ZOLPIDEM [Suspect]
     Route: 048
     Dates: start: 20110802, end: 20110814
  4. XANAX [Suspect]
     Route: 048
     Dates: end: 20110814
  5. ESCITALOPRAM OXALATE [Suspect]
     Route: 048
     Dates: start: 20110728, end: 20110814
  6. FERROUS SULFATE TAB [Suspect]
     Route: 048
     Dates: end: 20110814

REACTIONS (3)
  - EOSINOPHILIC PNEUMONIA [None]
  - DYSPNOEA [None]
  - ACUTE RESPIRATORY DISTRESS SYNDROME [None]
